FAERS Safety Report 18694969 (Version 1)
Quarter: 2021Q1

REPORT INFORMATION
  Report Type: Spontaneous
  Country: US (occurrence: US)
  Receive Date: 20210102
  Receipt Date: 20210102
  Transmission Date: 20210419
  Serious: Yes (Life-Threatening, Hospitalization, Other)
  Sender: FDA-Public Use
  Company Number: None

PATIENT
  Age: 21 Year
  Sex: Female
  Weight: 63 kg

DRUGS (1)
  1. LAMOTRIGINE 100MG, GENETIC FOR} LAMICTAL 100MG, UNI, ^DECKELMAN, MARY^ [Suspect]
     Active Substance: LAMOTRIGINE
     Indication: BIPOLAR DISORDER
     Dosage: ?          QUANTITY:21 TABLET(S);?
     Dates: start: 20210101

REACTIONS (3)
  - Vomiting [None]
  - Unresponsive to stimuli [None]
  - Intentional product misuse [None]

NARRATIVE: CASE EVENT DATE: 20210101
